FAERS Safety Report 25420617 (Version 1)
Quarter: 2025Q2

REPORT INFORMATION
  Report Type: Spontaneous
  Country: US (occurrence: US)
  Receive Date: 20250611
  Receipt Date: 20250611
  Transmission Date: 20250716
  Serious: No
  Sender: SANOFI AVENTIS
  Company Number: US-SA-2025SA163718

PATIENT
  Sex: Male
  Weight: 126.36 kg

DRUGS (14)
  1. DUPIXENT [Suspect]
     Active Substance: DUPILUMAB
     Indication: Dermatitis atopic
     Dosage: 300 MG, QOW
     Route: 058
  2. RINVOQ [Suspect]
     Active Substance: UPADACITINIB
     Route: 065
  3. ZOLPIDEM TARTRATE [Concomitant]
     Active Substance: ZOLPIDEM TARTRATE
  4. EDARBYCLOR [Concomitant]
     Active Substance: AZILSARTAN KAMEDOXOMIL\CHLORTHALIDONE
  5. AMLODIPINE BESYLATE [Concomitant]
     Active Substance: AMLODIPINE BESYLATE
  6. CARVEDILOL [Concomitant]
     Active Substance: CARVEDILOL
  7. COLCHICINE [Concomitant]
     Active Substance: COLCHICINE
  8. FLUCONAZOLE [Concomitant]
     Active Substance: FLUCONAZOLE
  9. METHOTREXATE [Concomitant]
     Active Substance: METHOTREXATE
  10. LEXAPRO [Concomitant]
     Active Substance: ESCITALOPRAM OXALATE
  11. EDARBYCLOR [Concomitant]
     Active Substance: AZILSARTAN KAMEDOXOMIL\CHLORTHALIDONE
  12. ALLOPURINOL [Concomitant]
     Active Substance: ALLOPURINOL
  13. COLCHICINE [Concomitant]
     Active Substance: COLCHICINE
  14. CLONIDINE HYDROCHLORIDE [Concomitant]
     Active Substance: CLONIDINE HYDROCHLORIDE

REACTIONS (2)
  - Dermatitis atopic [Unknown]
  - Rash [Unknown]
